FAERS Safety Report 20959957 (Version 1)
Quarter: 2022Q2

REPORT INFORMATION
  Report Type: Spontaneous
  Country: PK (occurrence: PK)
  Receive Date: 20220615
  Receipt Date: 20220615
  Transmission Date: 20220720
  Serious: Yes (Other)
  Sender: FDA-Public Use
  Company Number: PK-PFIZER INC-202200813283

PATIENT
  Age: 46 Year
  Sex: Female

DRUGS (2)
  1. ENBREL [Suspect]
     Active Substance: ETANERCEPT
     Indication: Rheumatoid arthritis
     Dosage: 50 MG, WEEKLY
     Route: 058
     Dates: start: 20211115
  2. ISONIAZID\RIFAMPIN [Concomitant]
     Active Substance: ISONIAZID\RIFAMPIN
     Dosage: UNK
     Dates: start: 202110, end: 202112

REACTIONS (2)
  - Diabetes mellitus [Unknown]
  - Weight decreased [Unknown]
